FAERS Safety Report 7469432-1 (Version None)
Quarter: 2011Q2

REPORT INFORMATION
  Report Type: 
  Country: None (occurrence: None)
  Receive Date: 20110510
  Receipt Date: 20110331
  Transmission Date: 20111010
  Serious: Yes (Hospitalization, Other)
  Sender: FDA-Public Use
  Company Number: US-BAYER-201011117NA

PATIENT
  Age: 32 Year
  Sex: Female
  Weight: 77.098 kg

DRUGS (2)
  1. YAZ [Suspect]
     Indication: CONTRACEPTION
     Dosage: UNK
     Dates: start: 20071224, end: 20081228
  2. YAZ [Suspect]
     Indication: ACNE

REACTIONS (4)
  - CEREBROVASCULAR ACCIDENT [None]
  - PARALYSIS [None]
  - CONFUSIONAL STATE [None]
  - ADJUSTMENT DISORDER [None]
